FAERS Safety Report 9791206 (Version 3)
Quarter: 2014Q1

REPORT INFORMATION
  Report Type: Report from Study
  Country: GB (occurrence: GB)
  Receive Date: 20131231
  Receipt Date: 20140214
  Transmission Date: 20141002
  Serious: Yes (Hospitalization, Other)
  Sender: FDA-Public Use
  Company Number: GB-ROCHE-1326756

PATIENT
  Age: 71 Year
  Sex: Male

DRUGS (21)
  1. RANIBIZUMAB [Suspect]
     Indication: PNEUMONIA ASPIRATION
     Dosage: MOST RECENT DOSE ON 26/SEP/2013.
     Route: 050
     Dates: start: 20100802
  2. RANIBIZUMAB [Suspect]
     Route: 050
     Dates: start: 20120121
  3. RANIBIZUMAB [Suspect]
     Route: 050
     Dates: start: 20130315
  4. RANIBIZUMAB [Suspect]
     Route: 050
     Dates: start: 20130926
  5. FLUPENTIXOL [Concomitant]
     Route: 065
     Dates: start: 20120912, end: 20130404
  6. CLARITHROMYCIN [Concomitant]
     Route: 065
     Dates: start: 20120906
  7. DOXAZOSIN [Concomitant]
     Route: 065
     Dates: start: 20120920, end: 20130404
  8. ATENOLOL [Concomitant]
     Route: 065
     Dates: start: 20120906, end: 20130404
  9. CITALOPRAM [Concomitant]
     Route: 065
     Dates: start: 20120920, end: 20130404
  10. LEVOTHYROXINE [Concomitant]
     Route: 065
     Dates: start: 20120920, end: 20130404
  11. RAMIPRIL [Concomitant]
     Route: 065
     Dates: start: 20120920, end: 20130404
  12. PREGABALIN [Concomitant]
     Route: 065
     Dates: start: 20121219, end: 20130404
  13. SIMVASTATIN [Concomitant]
     Route: 065
     Dates: start: 20130315, end: 20130404
  14. AMLODIPINE [Concomitant]
     Route: 065
     Dates: start: 20130404, end: 20131210
  15. BISOPROLOL [Concomitant]
     Route: 065
     Dates: start: 20130404, end: 20131210
  16. WARFARIN [Concomitant]
     Route: 065
     Dates: start: 20130404, end: 20131210
  17. BACLOFEN [Concomitant]
     Route: 065
     Dates: start: 20130404, end: 20131210
  18. LACTULOSE [Concomitant]
     Route: 065
     Dates: start: 20120704, end: 20131210
  19. ZOMORPH [Concomitant]
     Route: 065
     Dates: start: 20130907, end: 20130909
  20. ZOPICLONE [Concomitant]
     Route: 065
     Dates: start: 201307, end: 20131210
  21. CYCLIZINE [Concomitant]
     Route: 065
     Dates: start: 20130815, end: 20131210

REACTIONS (8)
  - Cerebrovascular accident [Recovering/Resolving]
  - Pneumonia aspiration [Recovered/Resolved]
  - Age-related macular degeneration [Recovering/Resolving]
  - Wound [Recovering/Resolving]
  - Lower respiratory tract infection [Recovered/Resolved]
  - Parkinson^s disease [Not Recovered/Not Resolved]
  - Choroidal neovascularisation [Unknown]
  - Depression [Not Recovered/Not Resolved]
